FAERS Safety Report 5747023-8 (Version None)
Quarter: 2008Q2

REPORT INFORMATION
  Report Type: 
  Country: None (occurrence: None)
  Receive Date: 20080522
  Receipt Date: 20080514
  Transmission Date: 20081010
  Serious: Yes (Hospitalization)
  Sender: FDA-Public Use
  Company Number: US-GENENTECH-260842

PATIENT
  Sex: Female
  Weight: 69.2 kg

DRUGS (11)
  1. TENECTEPLASE [Suspect]
     Indication: INDWELLING CATHETER MANAGEMENT
     Dates: start: 20080108
  2. TENECTEPLASE [Suspect]
     Dosage: 2 ML, UNK
     Route: 050
     Dates: start: 20080115
  3. COZAAR [Concomitant]
     Indication: HYPERTENSION
     Dosage: UNK, UNK
     Route: 048
     Dates: start: 20071220
  4. HUMALOG [Concomitant]
     Indication: DRUG USE FOR UNKNOWN INDICATION
     Route: 058
  5. HYDRALAZINE HCL [Concomitant]
     Indication: DRUG USE FOR UNKNOWN INDICATION
     Route: 048
  6. RENAGEL [Concomitant]
     Indication: HYPERPHOSPHATAEMIA
     Dosage: UNK, UNK
     Route: 048
     Dates: start: 20030819
  7. RENAL CAPS [Concomitant]
     Indication: DRUG USE FOR UNKNOWN INDICATION
     Route: 048
  8. SENSIPAR [Concomitant]
     Indication: DRUG USE FOR UNKNOWN INDICATION
     Route: 048
  9. HUMULIN R [Concomitant]
     Indication: DIABETES MELLITUS
     Dosage: UNK, UNK
     Dates: start: 19760101
  10. GABAPENTIN [Concomitant]
     Indication: NEURALGIA
     Dosage: UNK, UNK
     Dates: start: 20070920
  11. EPOGEN [Concomitant]
     Indication: ANAEMIA
     Dosage: UNK, UNK
     Dates: start: 20040601

REACTIONS (1)
  - BACTERAEMIA [None]
